FAERS Safety Report 11213631 (Version 2)
Quarter: 2015Q3

REPORT INFORMATION
  Report Type: Spontaneous
  Country: JP (occurrence: JP)
  Receive Date: 20150623
  Receipt Date: 20150721
  Transmission Date: 20151125
  Serious: Yes (Life-Threatening, Hospitalization, Other)
  Sender: FDA-Public Use
  Company Number: JP-MYLANLABS-2015M1019602

PATIENT

DRUGS (4)
  1. CARBOPLATIN INJECTION 150 MG ^NK^ [Suspect]
     Active Substance: CARBOPLATIN
     Indication: SMALL CELL LUNG CANCER
     Dosage: 350 MG, QD
     Route: 041
     Dates: start: 20150528, end: 20150528
  2. ETOPOSID [Suspect]
     Active Substance: ETOPOSIDE
     Indication: SMALL CELL LUNG CANCER
     Dosage: 150 MG, QD
     Route: 041
     Dates: start: 20150528, end: 20150530
  3. DEXART [Concomitant]
     Active Substance: DEXAMETHASONE SODIUM PHOSPHATE
     Indication: PRODUCT USED FOR UNKNOWN INDICATION
     Dosage: 6.6 MG, QD
     Route: 041
     Dates: start: 20150528, end: 20150530
  4. ALOXI [Concomitant]
     Active Substance: PALONOSETRON HYDROCHLORIDE
     Indication: PRODUCT USED FOR UNKNOWN INDICATION
     Dosage: 0.75 MG, QD
     Route: 041
     Dates: start: 20150528, end: 20150528

REACTIONS (5)
  - Leukopenia [Not Recovered/Not Resolved]
  - Pneumothorax [Not Recovered/Not Resolved]
  - Diarrhoea [Not Recovered/Not Resolved]
  - Thrombocytopenia [Not Recovered/Not Resolved]
  - Infectious pleural effusion [Not Recovered/Not Resolved]

NARRATIVE: CASE EVENT DATE: 20150602
